FAERS Safety Report 18310147 (Version 1)
Quarter: 2020Q3

REPORT INFORMATION
  Report Type: Report from Study
  Country: None (occurrence: US)
  Receive Date: 20200925
  Receipt Date: 20200925
  Transmission Date: 20201103
  Serious: Yes (Other)
  Sender: FDA-Public Use
  Company Number: US-ABBVIE-20K-163-3580705-00

PATIENT
  Sex: Male

DRUGS (1)
  1. IMBRUVICA [Suspect]
     Active Substance: IBRUTINIB
     Indication: CHRONIC LYMPHOCYTIC LEUKAEMIA
     Dosage: 140MG ONE DAILY ON DAY 1 THEN 140MG 2 CAPSULES NEXT DAY AND THEN REPEATS CYCLE
     Route: 048
     Dates: start: 20161120

REACTIONS (1)
  - Skin lesion [Unknown]
